FAERS Safety Report 7771905-9 (Version None)
Quarter: 2011Q3

REPORT INFORMATION
  Report Type: 
  Country: None (occurrence: None)
  Receive Date: 20110922
  Receipt Date: 20110415
  Transmission Date: 20111222
  Serious: No
  Sender: FDA-Public Use
  Company Number: US-ASTRAZENECA-2011SE22496

PATIENT
  Age: 51 Year
  Sex: Male

DRUGS (3)
  1. PROZAC [Concomitant]
     Indication: DEPRESSION
  2. SEROQUEL XR [Suspect]
     Indication: DEPRESSION
     Route: 048
     Dates: start: 20110101
  3. METOPROLOL [Concomitant]
     Indication: BLOOD PRESSURE

REACTIONS (3)
  - DRUG DOSE OMISSION [None]
  - INSOMNIA [None]
  - DEPRESSION [None]
